FAERS Safety Report 4824852-6 (Version None)
Quarter: 2005Q4

REPORT INFORMATION
  Report Type: 
  Country: None (occurrence: None)
  Receive Date: 20051109
  Receipt Date: 20051109
  Transmission Date: 20060501
  Serious: Yes (Hospitalization)
  Sender: FDA-Public Use
  Company Number: None

PATIENT
  Age: 69 Year
  Sex: Female
  Weight: 58 kg

DRUGS (7)
  1. OXALIPLATIN   50 MG/M2   IV  Q WEEK  X 5 [Suspect]
     Indication: RECTAL CANCER
     Dosage: OXALIPLATIN 80 MG.  IV
     Route: 042
     Dates: start: 20050809, end: 20050906
  2. XELODA [Suspect]
     Indication: RECTAL CANCER
     Dosage: XELODA 1150 MG. PO. BID
     Route: 048
     Dates: start: 20050809, end: 20050916
  3. LIPITOR [Concomitant]
  4. SEREVENT [Concomitant]
  5. ALBUTEROL [Concomitant]
  6. TRIAMTERENE AND HYDROCHLOROTHIAZIDE [Concomitant]
  7. COD LIVER OIL [Concomitant]

REACTIONS (5)
  - ELECTROCARDIOGRAM T WAVE INVERSION [None]
  - MYOCARDIAL ISCHAEMIA [None]
  - POST PROCEDURAL COMPLICATION [None]
  - TACHYCARDIA [None]
  - TROPONIN INCREASED [None]
